FAERS Safety Report 21256309 (Version 2)
Quarter: 2022Q3

REPORT INFORMATION
  Report Type: Spontaneous
  Country: US (occurrence: US)
  Receive Date: 20220825
  Receipt Date: 20220929
  Transmission Date: 20221026
  Serious: Yes (Other)
  Sender: FDA-Public Use
  Company Number: US-SA-SAC20220823000708

PATIENT
  Sex: Male
  Weight: 86.6 kg

DRUGS (2)
  1. DUPIXENT [Suspect]
     Active Substance: DUPILUMAB
     Indication: Asthma
     Dosage: 300 MG, QOW
     Route: 058
  2. DUPIXENT [Suspect]
     Active Substance: DUPILUMAB
     Indication: Brain neoplasm malignant

REACTIONS (3)
  - Brain neoplasm [Unknown]
  - Cough [Recovered/Resolved]
  - Product use in unapproved indication [Unknown]
